FAERS Safety Report 16471375 (Version 1)
Quarter: 2019Q2

REPORT INFORMATION
  Report Type: Spontaneous
  Country: US (occurrence: US)
  Receive Date: 20190624
  Receipt Date: 20190624
  Transmission Date: 20190711
  Serious: Yes (Other)
  Sender: FDA-Public Use
  Company Number: US-GILEAD-2019-0414915

PATIENT
  Age: 71 Year
  Sex: Male

DRUGS (8)
  1. LISINOPRIL. [Concomitant]
     Active Substance: LISINOPRIL
  2. COREG [Concomitant]
     Active Substance: CARVEDILOL
  3. MIRAPEX [Concomitant]
     Active Substance: PRAMIPEXOLE DIHYDROCHLORIDE
  4. VALSARTAN. [Concomitant]
     Active Substance: VALSARTAN
  5. PLAVIX [Concomitant]
     Active Substance: CLOPIDOGREL BISULFATE
  6. EPCLUSA [Suspect]
     Active Substance: SOFOSBUVIR\VELPATASVIR
     Indication: PRODUCT USED FOR UNKNOWN INDICATION
     Route: 065
  7. LIPITOR [Concomitant]
     Active Substance: ATORVASTATIN CALCIUM
  8. XANAX [Concomitant]
     Active Substance: ALPRAZOLAM

REACTIONS (2)
  - Blood creatinine increased [Unknown]
  - Blood urea increased [Unknown]
